FAERS Safety Report 10264847 (Version 2)
Quarter: 2014Q2

REPORT INFORMATION
  Report Type: Spontaneous
  Country: FR (occurrence: FR)
  Receive Date: 20140627
  Receipt Date: 20140627
  Transmission Date: 20141212
  Serious: Yes (Hospitalization, Disabling, Congenital Anomaly, Other)
  Sender: FDA-Public Use
  Company Number: FR-ABBVIE-14P-056-1218077-00

PATIENT
  Sex: Female

DRUGS (1)
  1. DEPAKOTE [Suspect]
     Indication: MATERNAL EXPOSURE TIMING UNSPECIFIED
     Route: 064

REACTIONS (18)
  - Neonatal respiratory distress syndrome [Recovered/Resolved]
  - Congenital cystic kidney disease [Unknown]
  - Hypertelorism of orbit [Unknown]
  - Skull malformation [Unknown]
  - Macrocephaly [Unknown]
  - Cleft lip [Unknown]
  - Lip disorder [Unknown]
  - Finger deformity [Unknown]
  - Exposure during pregnancy [Unknown]
  - Cardiac valve disease [Unknown]
  - Multiple congenital abnormalities [Unknown]
  - Speech disorder developmental [Not Recovered/Not Resolved]
  - Anxiety [Unknown]
  - Nightmare [Unknown]
  - Regurgitation [Recovered/Resolved]
  - Abdominal distension [Recovered/Resolved]
  - Hypokinesia [Unknown]
  - Cardiac murmur [Unknown]
